FAERS Safety Report 22084986 (Version 5)
Quarter: 2024Q1

REPORT INFORMATION
  Report Type: Spontaneous
  Country: US (occurrence: US)
  Receive Date: 20230310
  Receipt Date: 20240123
  Transmission Date: 20240410
  Serious: No
  Sender: FDA-Public Use
  Company Number: US-PFIZER INC-PV202300044717

PATIENT
  Age: 77 Year
  Sex: Male
  Weight: 101.59 kg

DRUGS (2)
  1. BRAFTOVI [Suspect]
     Active Substance: ENCORAFENIB
     Indication: Malignant melanoma
     Dosage: TAKE 6 CAPSULES DAILY
     Route: 048
     Dates: start: 20231219
  2. MEKTOVI [Suspect]
     Active Substance: BINIMETINIB
     Indication: Malignant melanoma
     Dosage: TAKE 3 TABLETS 2 (TWO) TIMES DAILY
     Route: 048
     Dates: start: 20231219

REACTIONS (1)
  - Memory impairment [Unknown]
